FAERS Safety Report 8157648-0 (Version None)
Quarter: 2012Q1

REPORT INFORMATION
  Report Type: 
  Country: None (occurrence: None)
  Receive Date: 20120222
  Receipt Date: 20111006
  Transmission Date: 20120608
  Serious: Yes (Hospitalization, Other)
  Sender: FDA-Public Use
  Company Number: US-ELI_LILLY_AND_COMPANY-US201110001872

PATIENT
  Sex: Female

DRUGS (3)
  1. FORTEO [Suspect]
     Dosage: 20 UG, QD
  2. FORTEO [Suspect]
     Dosage: 20 UG, QD
  3. FORTEO [Suspect]
     Indication: OSTEOPOROSIS
     Dosage: 20 UG, QD
     Dates: start: 20110401

REACTIONS (8)
  - HAEMORRHAGE [None]
  - FALL [None]
  - CHEST PAIN [None]
  - BLOOD PRESSURE DECREASED [None]
  - HEAD INJURY [None]
  - PNEUMONIA [None]
  - MENTAL IMPAIRMENT [None]
  - DYSPNOEA [None]
